FAERS Safety Report 7298170-3 (Version None)
Quarter: 2011Q1

REPORT INFORMATION
  Report Type: 
  Country: None (occurrence: None)
  Receive Date: 20110214
  Receipt Date: 20110214
  Transmission Date: 20110831
  Serious: Yes (Disabling)
  Sender: FDA-Public Use
  Company Number: None

PATIENT
  Age: 59 Year
  Sex: Female
  Weight: 80.7403 kg

DRUGS (1)
  1. SPIRIVA [Suspect]
     Indication: ASTHMA
     Dosage: IN HALE CONTENTS OF ONE CAPSUL ONCE A DAY
     Dates: start: 20100101, end: 20110213

REACTIONS (3)
  - DEVICE MALFUNCTION [None]
  - CAPSULE PHYSICAL ISSUE [None]
  - ECONOMIC PROBLEM [None]
